FAERS Safety Report 16104163 (Version 1)
Quarter: 2019Q1

REPORT INFORMATION
  Report Type: Spontaneous
  Country: FR (occurrence: FR)
  Receive Date: 20190322
  Receipt Date: 20190322
  Transmission Date: 20190418
  Serious: Yes (Death)
  Sender: FDA-Public Use
  Company Number: FR-TEVA-2019-FR-1028074

PATIENT
  Sex: Female

DRUGS (2)
  1. XEROQUEL [Concomitant]
     Active Substance: QUETIAPINE FUMARATE
  2. FLUOXETINE TEVA 20 MG [Suspect]
     Active Substance: FLUOXETINE HYDROCHLORIDE
     Indication: DEPRESSION
     Route: 065

REACTIONS (3)
  - Completed suicide [Fatal]
  - Overdose [Fatal]
  - Cardiac arrest [Fatal]
